FAERS Safety Report 23351650 (Version 1)
Quarter: 2023Q4

REPORT INFORMATION
  Report Type: Spontaneous
  Country: CN (occurrence: CN)
  Receive Date: 20231229
  Receipt Date: 20231229
  Transmission Date: 20240110
  Serious: Yes (Other)
  Sender: FDA-Public Use
  Company Number: CN-BAYER-2023A184915

PATIENT
  Age: 25 Year
  Sex: Female

DRUGS (3)
  1. ULTRAVIST [Suspect]
     Active Substance: IOPROMIDE
     Indication: Angiogram
     Dosage: UNK UNK, ONCE
     Route: 042
     Dates: start: 20231204, end: 20231204
  2. ULTRAVIST [Suspect]
     Active Substance: IOPROMIDE
     Indication: Angiogram cerebral
     Dosage: 100 ML, ONCE
     Route: 042
     Dates: start: 20231219, end: 20231219
  3. GADOBUTROL [Suspect]
     Active Substance: GADOBUTROL
     Indication: Magnetic resonance imaging
     Dosage: 7.5 ML, ONCE
     Route: 013
     Dates: start: 20231206, end: 20231206

REACTIONS (5)
  - Contrast media allergy [Recovering/Resolving]
  - Rash erythematous [Recovering/Resolving]
  - Dermatitis [Recovering/Resolving]
  - Incorrect route of product administration [None]
  - Product prescribing issue [None]

NARRATIVE: CASE EVENT DATE: 20231206
